FAERS Safety Report 20385616 (Version 1)
Quarter: 2022Q1

REPORT INFORMATION
  Report Type: Spontaneous
  Country: US (occurrence: US)
  Receive Date: 20220127
  Receipt Date: 20220127
  Transmission Date: 20220423
  Serious: No
  Sender: FDA-Public Use
  Company Number: US-ALLERGAN-2110629US

PATIENT
  Sex: Female
  Weight: 53.97 kg

DRUGS (5)
  1. BOTOX [Suspect]
     Active Substance: ONABOTULINUMTOXINA
     Indication: Migraine
     Dosage: UNK, SINGLE
     Dates: start: 20200601, end: 20200601
  2. BOTOX [Suspect]
     Active Substance: ONABOTULINUMTOXINA
     Dosage: 200 UNITS, SINGLE
     Dates: start: 2016, end: 2016
  3. BOTOX [Suspect]
     Active Substance: ONABOTULINUMTOXINA
     Dosage: 100 UNITS, SINGLE
     Dates: start: 2012, end: 2012
  4. COPPER [Concomitant]
     Active Substance: COPPER
  5. CEFDINIR [Concomitant]
     Active Substance: CEFDINIR

REACTIONS (29)
  - Ear discomfort [Recovering/Resolving]
  - Middle ear effusion [Recovering/Resolving]
  - Foreign body in ear [Recovering/Resolving]
  - Foreign body in throat [Unknown]
  - Bladder disorder [Recovering/Resolving]
  - Condition aggravated [Recovering/Resolving]
  - Convulsions local [Unknown]
  - Weight decreased [Recovering/Resolving]
  - Eating disorder [Unknown]
  - Balance disorder [Unknown]
  - Monoplegia [Recovered/Resolved]
  - Cardiac flutter [Unknown]
  - Feeling abnormal [Unknown]
  - Cystitis interstitial [Unknown]
  - Pain in extremity [Unknown]
  - Gait inability [Recovered/Resolved]
  - Haematuria [Unknown]
  - Trismus [Recovering/Resolving]
  - Pelvic floor muscle weakness [Recovering/Resolving]
  - Scar [Not Recovered/Not Resolved]
  - Injection site extravasation [Unknown]
  - Head discomfort [Unknown]
  - Illness [Unknown]
  - Muscular weakness [Unknown]
  - Facial paralysis [Not Recovered/Not Resolved]
  - Injection site muscle atrophy [Unknown]
  - Muscle spasms [Unknown]
  - Dyspnoea [Unknown]
  - Abdominal pain upper [Unknown]

NARRATIVE: CASE EVENT DATE: 20120101
